FAERS Safety Report 24993816 (Version 2)
Quarter: 2025Q1

REPORT INFORMATION
  Report Type: Spontaneous
  Country: US (occurrence: US)
  Receive Date: 20250221
  Receipt Date: 20250226
  Transmission Date: 20250409
  Serious: Yes (Life-Threatening, Hospitalization, Other)
  Sender: DR REDDYS
  Company Number: None

PATIENT
  Age: 27 Year
  Sex: Female

DRUGS (13)
  1. TACROLIMUS [Suspect]
     Active Substance: TACROLIMUS
     Indication: Immunosuppressant drug therapy
     Dosage: 0.1 MG/KG/DAY
  2. DARUNAVIR [Suspect]
     Active Substance: DARUNAVIR
     Indication: HIV infection
  3. RITONAVIR [Suspect]
     Active Substance: RITONAVIR
     Indication: HIV infection
  4. AZATHIOPRINE [Suspect]
     Active Substance: AZATHIOPRINE
     Indication: Immunosuppressant drug therapy
  5. JULUCA [Suspect]
     Active Substance: DOLUTEGRAVIR SODIUM\RILPIVIRINE HYDROCHLORIDE
     Indication: HIV infection
  6. DOLUTEGRAVIR [Suspect]
     Active Substance: DOLUTEGRAVIR
     Indication: Product used for unknown indication
  7. LAMIVUDINE [Suspect]
     Active Substance: LAMIVUDINE
     Indication: Product used for unknown indication
  8. ABACAVIR [Suspect]
     Active Substance: ABACAVIR
     Indication: Product used for unknown indication
  9. RIFAMPIN [Suspect]
     Active Substance: RIFAMPIN
     Indication: Product used for unknown indication
     Dosage: 600 MG ONCE A DAY ORALLY FOR 2 DAYS
     Route: 048
  10. NICARDIPINE [Suspect]
     Active Substance: NICARDIPINE
     Indication: Hypertension
  11. LABETALOL [Suspect]
     Active Substance: LABETALOL
     Indication: Hypertension
  12. MAGNESIUM [Suspect]
     Active Substance: MAGNESIUM
     Indication: Prophylaxis
  13. FENTANYL [Suspect]
     Active Substance: FENTANYL
     Indication: Abdominal pain upper
     Route: 042

REACTIONS (7)
  - Drug interaction [Recovered/Resolved]
  - Renal impairment [Recovered/Resolved]
  - Condition aggravated [Recovered/Resolved]
  - Hypertension [Recovered/Resolved]
  - Toxicity to various agents [Recovered/Resolved]
  - Exposure during pregnancy [Recovered/Resolved]
  - Normal newborn [Recovered/Resolved]
